FAERS Safety Report 24830326 (Version 2)
Quarter: 2025Q1

REPORT INFORMATION
  Report Type: Spontaneous
  Country: CA (occurrence: CA)
  Receive Date: 20250110
  Receipt Date: 20250304
  Transmission Date: 20250408
  Serious: Yes (Other)
  Sender: CSL BEHRING
  Company Number: CA-BEH-2025191069

PATIENT
  Age: 74 Year
  Sex: Female

DRUGS (21)
  1. HUMAN IMMUNOGLOBULIN G [Suspect]
     Active Substance: HUMAN IMMUNOGLOBULIN G
     Indication: Primary immunodeficiency syndrome
     Dosage: 10 G, Q, 1 EVERY 1 WEEKS
     Route: 058
     Dates: start: 20180809
  2. CUVITRU [Suspect]
     Active Substance: HUMAN IMMUNOGLOBULIN G
     Indication: Primary immunodeficiency syndrome
     Dosage: 10 G, QW
     Route: 058
     Dates: start: 20180809
  3. AMLODIPINE [Concomitant]
     Active Substance: AMLODIPINE BESYLATE
     Indication: Product used for unknown indication
  4. ASPIRIN [Concomitant]
     Active Substance: ASPIRIN
     Indication: Product used for unknown indication
  5. CELEBREX [Concomitant]
     Active Substance: CELECOXIB
     Indication: Product used for unknown indication
  6. LEVOTHYROXINE [Concomitant]
     Active Substance: LEVOTHYROXINE
     Indication: Product used for unknown indication
  7. RISEDRONATE SODIUM [Concomitant]
     Active Substance: RISEDRONATE SODIUM
     Indication: Product used for unknown indication
  8. ALBUTEROL SULFATE [Concomitant]
     Active Substance: ALBUTEROL SULFATE
     Indication: Product used for unknown indication
  9. ZANTAC [Concomitant]
     Active Substance: RANITIDINE HYDROCHLORIDE
     Indication: Product used for unknown indication
  10. ZOPICLONE [Concomitant]
     Active Substance: ZOPICLONE
     Indication: Product used for unknown indication
  11. LEVOTHYROXINE SODIUM [Concomitant]
     Active Substance: LEVOTHYROXINE SODIUM
  12. CELECOXIB [Concomitant]
     Active Substance: CELECOXIB
  13. RANITIDINE HYDROCHLORIDE [Concomitant]
     Active Substance: RANITIDINE HYDROCHLORIDE
  14. ASCORBIC ACID [Concomitant]
     Active Substance: ASCORBIC ACID
  15. .BETA.-CAROTENE [Concomitant]
     Active Substance: .BETA.-CAROTENE
  16. COPPER [Concomitant]
     Active Substance: COPPER
  17. RIBOFLAVIN [Concomitant]
     Active Substance: RIBOFLAVIN
  18. SELENIUM [Concomitant]
     Active Substance: SELENIUM
  19. TOCOPHEROL [Concomitant]
     Active Substance: TOCOPHEROL
  20. LUTEIN [Concomitant]
     Active Substance: LUTEIN
  21. ZINC [Concomitant]
     Active Substance: ZINC

REACTIONS (6)
  - Cough [Unknown]
  - Erythema [Unknown]
  - Gastrooesophageal reflux disease [Unknown]
  - Pain [Unknown]
  - Sinusitis [Unknown]
  - Infusion site pain [Unknown]
